FAERS Safety Report 9680788 (Version 1)
Quarter: 2013Q4

REPORT INFORMATION
  Report Type: Spontaneous
  Country: QA (occurrence: QA)
  Receive Date: 20131111
  Receipt Date: 20131111
  Transmission Date: 20140711
  Serious: Yes (Disabling, Other)
  Sender: FDA-Public Use
  Company Number: PHHY2013QA126261

PATIENT
  Age: 51 Year
  Sex: Male

DRUGS (1)
  1. GILENYA [Suspect]
     Indication: MULTIPLE SCLEROSIS
     Dosage: 0.5 MG, QD
     Route: 048
     Dates: start: 20130409, end: 20131027

REACTIONS (4)
  - Rash [Not Recovered/Not Resolved]
  - Back pain [Not Recovered/Not Resolved]
  - Impaired driving ability [Unknown]
  - Flushing [Unknown]
